FAERS Safety Report 6704644-3 (Version None)
Quarter: 2010Q2

REPORT INFORMATION
  Report Type: 
  Country: None (occurrence: None)
  Receive Date: 20100430
  Receipt Date: 20100421
  Transmission Date: 20101027
  Serious: Yes (Other)
  Sender: FDA-Public Use
  Company Number: US-JNJFOC-20100300083

PATIENT
  Sex: Male
  Weight: 129.28 kg

DRUGS (10)
  1. RISPERIDONE [Suspect]
     Indication: SCHIZOPHRENIA
     Route: 048
  2. ZYPREXA [Concomitant]
     Indication: SCHIZOPHRENIA
     Route: 048
  3. COLACE [Concomitant]
     Indication: CONSTIPATION
     Route: 048
  4. COGENTIN [Concomitant]
  5. AMBIEN [Concomitant]
     Route: 065
  6. VISTARIL [Concomitant]
     Route: 065
  7. ZIAC [Concomitant]
     Route: 065
  8. LISINOPRIL [Concomitant]
     Route: 065
  9. HYDROCHLOROTHIAZIDE [Concomitant]
     Route: 065
  10. ETODOLAC [Concomitant]
     Route: 065

REACTIONS (13)
  - ANXIETY [None]
  - CONSTIPATION [None]
  - EYE DISORDER [None]
  - GAIT DISTURBANCE [None]
  - HYPERTENSION [None]
  - HYPOAESTHESIA [None]
  - HYPOAESTHESIA FACIAL [None]
  - MUSCULAR WEAKNESS [None]
  - MYELOPATHY [None]
  - NECK PAIN [None]
  - OVERDOSE [None]
  - SEXUAL DYSFUNCTION [None]
  - TORTICOLLIS [None]
